FAERS Safety Report 16037832 (Version 2)
Quarter: 2019Q1

REPORT INFORMATION
  Report Type: Spontaneous
  Country: CN (occurrence: CN)
  Receive Date: 20190305
  Receipt Date: 20190312
  Transmission Date: 20190418
  Serious: Yes (Hospitalization)
  Sender: FDA-Public Use
  Company Number: CN-CELGENEUS-CHN-20190208692

PATIENT
  Age: 73 Year
  Sex: Male
  Weight: 69 kg

DRUGS (2)
  1. EPIDAZA [Suspect]
     Active Substance: TUCIDINOSTAT
     Indication: NON-HODGKIN^S LYMPHOMA
     Dosage: 8.5714 MILLIGRAM
     Route: 048
     Dates: start: 20181201, end: 20190127
  2. REVLIMID [Suspect]
     Active Substance: LENALIDOMIDE
     Indication: NON-HODGKIN^S LYMPHOMA
     Dosage: 10 MILLIGRAM
     Route: 048
     Dates: start: 20181201, end: 20190127

REACTIONS (3)
  - Hypoproteinaemia [Recovering/Resolving]
  - Bone marrow failure [Recovering/Resolving]
  - Hypokalaemia [Recovering/Resolving]

NARRATIVE: CASE EVENT DATE: 20190129
